FAERS Safety Report 6470418-4 (Version None)
Quarter: 2009Q4

REPORT INFORMATION
  Report Type: 
  Country: None (occurrence: None)
  Receive Date: 20091203
  Receipt Date: 20091123
  Transmission Date: 20100525
  Serious: Yes (Life-Threatening, Hospitalization)
  Sender: FDA-Public Use
  Company Number: ZA-JNJFOC-20091106802

PATIENT
  Sex: Female

DRUGS (1)
  1. REVELLEX [Suspect]
     Indication: JUVENILE ARTHRITIS
     Route: 042
     Dates: start: 20090827

REACTIONS (1)
  - MEASLES [None]
